FAERS Safety Report 18511062 (Version 5)
Quarter: 2020Q4

REPORT INFORMATION
  Report Type: Report from Study
  Country: JP (occurrence: JP)
  Receive Date: 20201117
  Receipt Date: 20201221
  Transmission Date: 20210114
  Serious: Yes (Death, Life-Threatening, Hospitalization)
  Sender: FDA-Public Use
  Company Number: JP-EISAI MEDICAL RESEARCH-EC-2020-083821

PATIENT
  Age: 72 Year
  Sex: Male
  Weight: 64.6 kg

DRUGS (18)
  1. PETROLATUM, WHITE [Concomitant]
     Active Substance: PETROLATUM
     Dates: start: 20191123
  2. METFORMIN HYDROCHLORIDE. [Concomitant]
     Active Substance: METFORMIN HYDROCHLORIDE
     Dates: start: 201910
  3. MAGNESIUM OXIDE. [Concomitant]
     Active Substance: MAGNESIUM OXIDE
     Dates: start: 201910
  4. HEPARINOID OIL BASED CREAM NICHIIKO [Concomitant]
     Dates: start: 20191130
  5. ZEFNART [Concomitant]
     Dates: start: 201911
  6. GLACTIV [Concomitant]
     Active Substance: SITAGLIPTIN
     Dates: start: 201910
  7. LENVATINIB [Suspect]
     Active Substance: LENVATINIB
     Indication: NON-SMALL CELL LUNG CANCER METASTATIC
     Route: 048
     Dates: start: 20191120, end: 20201107
  8. KARI UNI [Concomitant]
     Dates: start: 201910
  9. PEMBROLIZUMAB. [Suspect]
     Active Substance: PEMBROLIZUMAB
     Route: 042
     Dates: start: 20200923, end: 20200923
  10. MAGMITT [Concomitant]
     Active Substance: MAGNESIUM OXIDE
     Dates: start: 20191123
  11. DEXALTIN [Concomitant]
     Active Substance: DEXAMETHASONE
     Dates: start: 20191220
  12. THYRADIN-S [Concomitant]
     Active Substance: LEVOTHYROXINE
     Dates: start: 20200520
  13. OLMESARTAN TOWA [Concomitant]
     Dates: start: 201910
  14. CODEINE PHOSPHATE [Concomitant]
     Active Substance: CODEINE PHOSPHATE
     Dates: start: 20191119
  15. CAMOSTAT MESYLATE [Concomitant]
     Active Substance: CAMOSTAT MESYLATE
     Dates: start: 201910
  16. PEMBROLIZUMAB. [Suspect]
     Active Substance: PEMBROLIZUMAB
     Indication: NON-SMALL CELL LUNG CANCER METASTATIC
     Route: 042
     Dates: start: 20191120, end: 20200902
  17. AZUNOL (SODIUM GUALENATE) [Concomitant]
     Route: 054
     Dates: start: 20191220
  18. TEARBALANCE [Concomitant]
     Active Substance: HYALURONATE SODIUM
     Dates: start: 201910

REACTIONS (1)
  - Death [Fatal]

NARRATIVE: CASE EVENT DATE: 20201108
